FAERS Safety Report 10031725 (Version 1)
Quarter: 2014Q1

REPORT INFORMATION
  Report Type: Spontaneous
  Country: US (occurrence: US)
  Receive Date: 20140324
  Receipt Date: 20140324
  Transmission Date: 20141002
  Serious: No
  Sender: FDA-Public Use
  Company Number: US-PFIZER INC-2014083464

PATIENT
  Age: 59 Year
  Sex: Female
  Weight: 81.63 kg

DRUGS (4)
  1. EFFEXOR XR [Suspect]
     Indication: POST-TRAUMATIC STRESS DISORDER
     Dosage: 75 MG, 2X/DAY
  2. EFFEXOR XR [Suspect]
     Indication: ANXIETY
  3. EFFEXOR XR [Suspect]
     Indication: DEPRESSION
  4. ATENOLOL [Concomitant]
     Indication: HYPERTENSION
     Dosage: 25 MG, 2X/DAY

REACTIONS (4)
  - Hearing impaired [Unknown]
  - Malaise [Unknown]
  - Hypersomnia [Unknown]
  - Intentional drug misuse [Unknown]
